FAERS Safety Report 5384446-3 (Version None)
Quarter: 2007Q3

REPORT INFORMATION
  Report Type: 
  Country: None (occurrence: None)
  Receive Date: 20070711
  Receipt Date: 20070702
  Transmission Date: 20080115
  Serious: Yes (Other)
  Sender: FDA-Public Use
  Company Number: FR-PFIZER INC-2007039264

PATIENT
  Sex: Female
  Weight: 49 kg

DRUGS (3)
  1. NEURONTIN [Suspect]
     Indication: HERPES ZOSTER
     Route: 048
     Dates: start: 20060603, end: 20061204
  2. LYRICA [Suspect]
     Indication: POST HERPETIC NEURALGIA
     Route: 048
     Dates: start: 20070119, end: 20070510
  3. LYRICA [Suspect]
     Indication: HERPES ZOSTER

REACTIONS (3)
  - ASCITES [None]
  - HEPATITIS [None]
  - OEDEMA PERIPHERAL [None]
